FAERS Safety Report 24326916 (Version 2)
Quarter: 2024Q3

REPORT INFORMATION
  Report Type: Report from Study
  Country: DE (occurrence: DE)
  Receive Date: 20240917
  Receipt Date: 20240927
  Transmission Date: 20241016
  Serious: Yes (Hospitalization)
  Sender: TEVA
  Company Number: DE-TEVA-VS-3242626

PATIENT
  Age: 80 Year
  Sex: Female

DRUGS (2)
  1. ASPIRIN [Suspect]
     Active Substance: ASPIRIN
     Indication: Platelet aggregation inhibition
     Route: 065
  2. CLOPIDOGREL [Suspect]
     Active Substance: CLOPIDOGREL BISULFATE
     Indication: Platelet aggregation inhibition
     Route: 065

REACTIONS (2)
  - Ureteric fistula [Recovered/Resolved]
  - Angiopathy [Recovered/Resolved]
